FAERS Safety Report 25735443 (Version 1)
Quarter: 2025Q3

REPORT INFORMATION
  Report Type: Other
  Country: CA (occurrence: CA)
  Receive Date: 20250828
  Receipt Date: 20250828
  Transmission Date: 20251020
  Serious: Yes (Other)
  Sender: PFIZER
  Company Number: CA-PFIZER INC-202500171398

PATIENT
  Age: 59 Year
  Sex: Female

DRUGS (10)
  1. RITUXIMAB [Suspect]
     Active Substance: RITUXIMAB
     Indication: Extranodal marginal zone B-cell lymphoma (MALT type)
  2. CYCLOPHOSPHAMIDE [Suspect]
     Active Substance: CYCLOPHOSPHAMIDE
     Indication: Extranodal marginal zone B-cell lymphoma (MALT type)
  3. PREDNISONE [Suspect]
     Active Substance: PREDNISONE
     Indication: Extranodal marginal zone B-cell lymphoma (MALT type)
     Dosage: 5.0 MG, EVERY 1 DAYS
     Route: 048
  4. PANTOPRAZOLE [Suspect]
     Active Substance: PANTOPRAZOLE
  5. WARFARIN [Suspect]
     Active Substance: WARFARIN
  6. DENOSUMAB [Concomitant]
     Active Substance: DENOSUMAB
  7. HYDROXYCHLOROQUINE [Concomitant]
     Active Substance: HYDROXYCHLOROQUINE
  8. RAMIPRIL [Concomitant]
     Active Substance: RAMIPRIL
  9. ROSUVASTATIN [Concomitant]
     Active Substance: ROSUVASTATIN
  10. VITAMIN D NOS [Concomitant]
     Active Substance: CHOLECALCIFEROL\ERGOCALCIFEROL

REACTIONS (1)
  - Osteoporosis [Unknown]
